FAERS Safety Report 18042960 (Version 1)
Quarter: 2020Q3

REPORT INFORMATION
  Report Type: Spontaneous
  Country: US (occurrence: US)
  Receive Date: 20200717
  Receipt Date: 20200717
  Transmission Date: 20201103
  Serious: Yes (Other)
  Sender: FDA-Public Use
  Company Number: None

PATIENT
  Age: 37 Year
  Sex: Female
  Weight: 67.5 kg

DRUGS (1)
  1. BLUMEN ADVANCED HAND SANITIZER [Suspect]
     Active Substance: ALCOHOL
     Indication: PRODUCT USED FOR UNKNOWN INDICATION
     Route: 061
     Dates: start: 20200615, end: 20200617

REACTIONS (3)
  - Dermatitis contact [None]
  - Pruritus [None]
  - Insomnia [None]

NARRATIVE: CASE EVENT DATE: 20200617
